FAERS Safety Report 8834324 (Version 1)
Quarter: 2012Q4

REPORT INFORMATION
  Report Type: Spontaneous
  Country: US (occurrence: None)
  Receive Date: 20121010
  Receipt Date: 20121010
  Transmission Date: 20130627
  Serious: Yes (Other)
  Sender: FDA-Public Use
  Company Number: None

PATIENT
  Age: 33 Year
  Sex: Female
  Weight: 58.97 kg

DRUGS (1)
  1. MIRENA [Suspect]
     Dosage: 1 5 years intra-uterine
     Route: 015

REACTIONS (8)
  - Device dislocation [None]
  - Haemorrhage [None]
  - Muscle spasms [None]
  - Pain [None]
  - Infection [None]
  - Infertility [None]
  - Scar [None]
  - Pelvic inflammatory disease [None]
